FAERS Safety Report 8573569 (Version 3)
Quarter: 2012Q4

REPORT INFORMATION
  Report Type: Spontaneous
  Country: DK (occurrence: None)
  Receive Date: 20120516
  Receipt Date: 20120831
  Transmission Date: 20130627
  Serious: Yes (Other)
  Sender: FDA-Public Use
  Company Number: 2012MA005981

PATIENT
  Age: 63 Year
  Sex: Female

DRUGS (4)
  1. GEMCITABINE HYDROCHLORIDE [Suspect]
     Indication: BREAST CANCER METASTATIC
     Dosage: 1600 MG;Q3W;IV
     Route: 042
     Dates: start: 20120106
  2. CARBOPLATIN [Concomitant]
  3. ONDANSETRON [Concomitant]
  4. DEXAMETHASONE [Concomitant]

REACTIONS (3)
  - Anxiety [None]
  - Balance disorder [None]
  - Feeling drunk [None]
